FAERS Safety Report 12056776 (Version 1)
Quarter: 2016Q1

REPORT INFORMATION
  Report Type: Spontaneous
  Country: US (occurrence: US)
  Receive Date: 20160209
  Receipt Date: 20160209
  Transmission Date: 20160526
  Serious: Yes (Hospitalization, Other)
  Sender: FDA-Public Use
  Company Number: US-GLAXOSMITHKLINE-US2016GSK018396

PATIENT
  Sex: Female

DRUGS (1)
  1. BENLYSTA [Suspect]
     Active Substance: BELIMUMAB
     Indication: SYSTEMIC LUPUS ERYTHEMATOSUS
     Dosage: UNK
     Dates: start: 20160118

REACTIONS (11)
  - Renal impairment [Unknown]
  - Sinusitis [Unknown]
  - Headache [Unknown]
  - Hospitalisation [Unknown]
  - Tremor [Unknown]
  - Urticaria [Unknown]
  - Hypotension [Unknown]
  - Infection [Unknown]
  - Pruritus [Unknown]
  - Head discomfort [Unknown]
  - Rash [Unknown]
